FAERS Safety Report 7467978-3 (Version None)
Quarter: 2011Q2

REPORT INFORMATION
  Report Type: 
  Country: None (occurrence: None)
  Receive Date: 20110509
  Receipt Date: 20110310
  Transmission Date: 20111010
  Serious: No
  Sender: FDA-Public Use
  Company Number: US-ALEXION-A201100310

PATIENT
  Sex: Male

DRUGS (8)
  1. RESTORIL                           /00393701/ [Concomitant]
     Dosage: 15 MG, QD
     Route: 048
  2. FOLIC ACID [Concomitant]
     Dosage: 1 MG, QD
     Route: 048
  3. VITAMIN B                          /90046501/ [Concomitant]
     Dosage: 1000 UG, QD
     Route: 048
  4. SOLIRIS [Suspect]
     Indication: PAROXYSMAL NOCTURNAL HAEMOGLOBINURIA
     Dosage: 600 MG, QW
     Route: 042
     Dates: start: 20090201, end: 20090301
  5. SOLIRIS [Suspect]
     Dosage: 900 MG, Q2W
     Route: 042
     Dates: start: 20090301
  6. TOPROL-XL [Concomitant]
     Dosage: 25 MG, BID
     Route: 048
  7. RAMIPRIL [Concomitant]
     Dosage: 25 MG, QD
     Route: 048
  8. LASIX [Concomitant]
     Dosage: 20 MG, BID
     Route: 048

REACTIONS (1)
  - HAEMOGLOBINURIA [None]
